FAERS Safety Report 7781387-9 (Version None)
Quarter: 2011Q3

REPORT INFORMATION
  Report Type: 
  Country: None (occurrence: None)
  Receive Date: 20110927
  Receipt Date: 20110921
  Transmission Date: 20111222
  Serious: Yes (Hospitalization, Other)
  Sender: FDA-Public Use
  Company Number: US-MERCK-1105USA01701

PATIENT
  Age: 62 Year
  Sex: Female
  Weight: 82 kg

DRUGS (23)
  1. BONIVA [Suspect]
     Indication: PROPHYLAXIS
     Route: 065
     Dates: start: 20080101, end: 20080901
  2. CENTRUM [Concomitant]
     Route: 048
  3. LOVENOX [Concomitant]
     Route: 065
  4. GLUCOSAMINE [Concomitant]
     Route: 048
  5. FOSAMAX [Suspect]
     Indication: PROPHYLAXIS
     Route: 048
     Dates: start: 19970101, end: 20071001
  6. CHONDROITIN SULFATE SODIUM AND GLUCOSAMINE SULFATE [Concomitant]
     Route: 065
  7. OS-CAL [Concomitant]
     Route: 065
  8. AMBIEN [Concomitant]
     Route: 065
  9. FOSAMAX [Suspect]
     Route: 048
     Dates: start: 19970101
  10. FOSAMAX [Suspect]
     Indication: OSTEOPENIA
     Route: 048
     Dates: start: 19970101, end: 20071001
  11. CALCIUM (UNSPECIFIED) AND VITAMIN D (UNSPECIFIED) [Concomitant]
     Route: 065
     Dates: start: 19970101
  12. IRON (UNSPECIFIED) [Concomitant]
     Route: 065
  13. CRANBERRY [Concomitant]
     Route: 048
  14. VOLTAREN [Concomitant]
     Route: 048
  15. DIMETHYL SULFONE [Concomitant]
     Route: 048
  16. FOSAMAX PLUS D [Suspect]
     Indication: OSTEOPENIA
     Route: 048
     Dates: start: 20071001, end: 20080101
  17. ASPIRIN [Concomitant]
     Route: 048
  18. CHONDROITIN [Concomitant]
     Route: 048
  19. FOSAMAX [Suspect]
     Route: 048
     Dates: start: 19970101
  20. FOSAMAX PLUS D [Suspect]
     Indication: PROPHYLAXIS
     Route: 048
     Dates: start: 20071001, end: 20080101
  21. VITAMINS (UNSPECIFIED) [Concomitant]
     Route: 065
  22. COLACE [Concomitant]
     Route: 065
  23. UBIDECARENONE [Concomitant]
     Route: 048

REACTIONS (17)
  - EXOSTOSIS [None]
  - BREAST CALCIFICATIONS [None]
  - ARTHROPATHY [None]
  - VENTRICULAR TACHYCARDIA [None]
  - BLOOD CHOLESTEROL INCREASED [None]
  - PRESYNCOPE [None]
  - TOOTH DISORDER [None]
  - OSTEOPOROSIS [None]
  - HYPERTENSION [None]
  - FALL [None]
  - PAIN IN EXTREMITY [None]
  - FEMUR FRACTURE [None]
  - OSTEOARTHRITIS [None]
  - VITAMIN D DEFICIENCY [None]
  - HYPOTHYROIDISM [None]
  - JOINT INJURY [None]
  - ARTHRITIS [None]
